FAERS Safety Report 6254024-2 (Version None)
Quarter: 2009Q3

REPORT INFORMATION
  Report Type: 
  Country: None (occurrence: None)
  Receive Date: 20090702
  Receipt Date: 20090625
  Transmission Date: 20100115
  Serious: Yes (Life-Threatening)
  Sender: FDA-Public Use
  Company Number: GB-ROCHE-640482

PATIENT
  Age: 61 Year
  Sex: Male
  Weight: 90 kg

DRUGS (3)
  1. CAPECITABINE [Suspect]
     Dosage: DRUG WITHDRAWN
     Route: 048
     Dates: start: 20090128, end: 20090201
  2. FLUOROURACIL [Concomitant]
     Route: 042
  3. METOCLOPRAMIDE [Concomitant]
     Route: 048
     Dates: start: 20090128, end: 20090201

REACTIONS (1)
  - VENTRICULAR FIBRILLATION [None]
